FAERS Safety Report 9409468 (Version 1)
Quarter: 2013Q2

REPORT INFORMATION
  Report Type: Spontaneous
  Country: US (occurrence: US)
  Receive Date: 20130401
  Receipt Date: 20130401
  Transmission Date: 20140414
  Serious: No
  Sender: FDA-Public Use
  Company Number: R-12-037

PATIENT
  Age: 40 Year
  Sex: Female

DRUGS (14)
  1. ASTHMANEFRIN INHALATION SOLUTION, 2.25% [Suspect]
     Indication: RESPIRATORY DISTRESS
     Dosage: 1 VIAL
     Route: 055
     Dates: start: 20120902, end: 20120904
  2. SPIRIVA HANDIHALER [Concomitant]
  3. SYMBICORT 80/4.5 [Concomitant]
  4. COMBIVENT [Concomitant]
  5. ALBUTEROL/VENTOLIN INHALER [Concomitant]
  6. ASMANEX [Concomitant]
  7. TERBUTALINE TABLETS [Concomitant]
  8. LISINOPRIL TABLETS [Concomitant]
  9. METOPROLOL TARTRATE 25 MG TABLETS [Concomitant]
  10. PAXIL [Concomitant]
  11. OMEPRAZOLE [Concomitant]
  12. VICODIN [Concomitant]
  13. IBUPROFEN [Concomitant]
  14. TYLENOL [Concomitant]

REACTIONS (1)
  - Adverse event [None]
